FAERS Safety Report 8042970-9 (Version None)
Quarter: 2012Q1

REPORT INFORMATION
  Report Type: 
  Country: None (occurrence: None)
  Receive Date: 20120112
  Receipt Date: 20111228
  Transmission Date: 20120608
  Serious: Yes (Hospitalization, Other)
  Sender: FDA-Public Use
  Company Number: PHFR2010IE03374

PATIENT
  Sex: Male

DRUGS (4)
  1. CLOZARIL [Suspect]
     Dosage: UNK MG,
     Route: 048
     Dates: start: 20101201
  2. SOLIAN [Concomitant]
     Indication: PSYCHOTIC DISORDER
     Dosage: 600 MG, BID
  3. CLOZARIL [Suspect]
     Dosage: UNK MG,
     Route: 048
     Dates: start: 20110501
  4. CLOZARIL [Suspect]
     Indication: SCHIZOPHRENIA
     Dosage: UNK MG,
     Route: 048
     Dates: start: 20070620, end: 20100801

REACTIONS (9)
  - MALAISE [None]
  - WHITE BLOOD CELL COUNT DECREASED [None]
  - PERICARDITIS [None]
  - AGITATION [None]
  - PSYCHOTIC DISORDER [None]
  - MENTAL IMPAIRMENT [None]
  - NEUTROPENIA [None]
  - LUNG INFECTION [None]
  - PERICARDIAL EFFUSION [None]
